FAERS Safety Report 13743886 (Version 2)
Quarter: 2017Q3

REPORT INFORMATION
  Report Type: Spontaneous
  Country: FR (occurrence: FR)
  Receive Date: 20170712
  Receipt Date: 20170724
  Transmission Date: 20171127
  Serious: Yes (Death)
  Sender: FDA-Public Use
  Company Number: FR-ROCHE-1961711

PATIENT
  Age: 98 Year
  Sex: Male

DRUGS (2)
  1. LASILIX [Concomitant]
     Active Substance: FUROSEMIDE
     Indication: CARDIAC FAILURE
     Route: 048
  2. LUCENTIS [Suspect]
     Active Substance: RANIBIZUMAB
     Indication: NEOVASCULAR AGE-RELATED MACULAR DEGENERATION
     Dosage: 10 MG/ML
     Route: 031
     Dates: start: 20130920, end: 20170331

REACTIONS (2)
  - Cerebral infarction [Fatal]
  - Blindness cortical [Fatal]

NARRATIVE: CASE EVENT DATE: 20170521
